FAERS Safety Report 4800238-5 (Version None)
Quarter: 2005Q4

REPORT INFORMATION
  Report Type: 
  Country: None (occurrence: None)
  Receive Date: 20051013
  Receipt Date: 20051010
  Transmission Date: 20060501
  Serious: Yes (Other)
  Sender: FDA-Public Use
  Company Number: 200510640BNE

PATIENT
  Age: 61 Year
  Sex: Female
  Weight: 75 kg

DRUGS (4)
  1. CIPROFLOXACIN [Suspect]
     Indication: POSTOPERATIVE INFECTION
     Dosage: 500 MG, BID, ORAL
     Route: 048
     Dates: start: 20050909, end: 20050913
  2. TRAMADOL HCL [Concomitant]
  3. MELOXICAM [Concomitant]
  4. CITALOPRAM [Concomitant]

REACTIONS (4)
  - EMOTIONAL DISTRESS [None]
  - HALLUCINATION [None]
  - MENTAL DISORDER [None]
  - NAUSEA [None]
